FAERS Safety Report 9255138 (Version 1)
Quarter: 2013Q2

REPORT INFORMATION
  Report Type: Spontaneous
  Country: TR (occurrence: TR)
  Receive Date: 20130425
  Receipt Date: 20130425
  Transmission Date: 20140414
  Serious: Yes (Other)
  Sender: FDA-Public Use
  Company Number: TR-ELI_LILLY_AND_COMPANY-TR201304007055

PATIENT
  Sex: 0

DRUGS (24)
  1. HUMULIN REGULAR [Suspect]
     Indication: BLOOD GLUCOSE INCREASED
     Dosage: 6 U, QD
     Route: 064
  2. HUMULIN REGULAR [Suspect]
     Indication: BLOOD GLUCOSE INCREASED
     Dosage: 6 U, QD
     Route: 064
  3. HUMULIN REGULAR [Suspect]
     Dosage: 4 U, QD
  4. HUMULIN REGULAR [Suspect]
     Dosage: 4 U, QD
  5. HUMULIN REGULAR [Suspect]
     Dosage: 4 U, QD
  6. HUMULIN REGULAR [Suspect]
     Dosage: 4 U, QD
  7. HUMULIN NPH [Suspect]
     Indication: BLOOD GLUCOSE INCREASED
     Dosage: 6 U, QD
     Route: 064
  8. HUMULIN NPH [Suspect]
     Indication: BLOOD GLUCOSE INCREASED
     Dosage: 6 U, QD
     Route: 064
  9. NIDILAT [Concomitant]
     Indication: BLOOD PRESSURE
     Dosage: 40 MG, BID
     Route: 064
  10. NIDILAT [Concomitant]
     Indication: BLOOD PRESSURE
     Dosage: 40 MG, BID
     Route: 064
  11. NITROFURANTOIN [Concomitant]
     Dosage: 50 MG, TID
     Route: 064
  12. NITROFURANTOIN [Concomitant]
     Dosage: 50 MG, TID
     Route: 064
  13. OXYGEN [Concomitant]
     Dosage: 100 %, UNKNOWN
     Route: 064
  14. OXYGEN [Concomitant]
     Dosage: 100 %, UNKNOWN
     Route: 064
  15. OXYGEN [Concomitant]
     Dosage: 33 %, UNKNOWN
  16. OXYGEN [Concomitant]
     Dosage: 33 %, UNKNOWN
  17. PROPOFOL [Concomitant]
     Indication: INDUCTION OF ANAESTHESIA
     Dosage: 2 MG/KG, UNK
     Route: 064
  18. PROPOFOL [Concomitant]
     Indication: INDUCTION OF ANAESTHESIA
     Dosage: 2 MG/KG, UNK
     Route: 064
  19. SUCCINYLCHOLINE [Concomitant]
     Indication: INDUCTION OF ANAESTHESIA
     Dosage: 1 MG/KG, UNK
     Route: 064
  20. SUCCINYLCHOLINE [Concomitant]
     Indication: INDUCTION OF ANAESTHESIA
     Dosage: 1 MG/KG, UNK
     Route: 064
  21. DESFLURANE [Concomitant]
     Indication: ANAESTHESIA
     Dosage: UNK UNK, UNKNOWN
     Route: 064
  22. DESFLURANE [Concomitant]
     Indication: ANAESTHESIA
     Dosage: UNK UNK, UNKNOWN
     Route: 064
  23. NITROUS OXIDE W/OXYGEN [Concomitant]
     Indication: ANAESTHESIA
     Dosage: UNK
     Route: 064
  24. NITROUS OXIDE W/OXYGEN [Concomitant]
     Indication: ANAESTHESIA
     Dosage: UNK
     Route: 064

REACTIONS (2)
  - Premature baby [Unknown]
  - Foetal exposure during pregnancy [Unknown]
